FAERS Safety Report 7823632-7 (Version None)
Quarter: 2011Q4

REPORT INFORMATION
  Report Type: 
  Country: None (occurrence: None)
  Receive Date: 20111019
  Receipt Date: 20111019
  Transmission Date: 20120403
  Serious: Yes (Other)
  Sender: FDA-Public Use
  Company Number: None

PATIENT
  Age: 25 Year
  Sex: Female
  Weight: 77.11 kg

DRUGS (5)
  1. GAVILYTE-C SOLUTION [Concomitant]
  2. VANCOMYCIN HCL [Concomitant]
  3. OXYCODONE HCL [Concomitant]
  4. LORAZEPAM [Concomitant]
  5. FENTANYL [Suspect]
     Indication: PAIN
     Dosage: 1 PATCH
     Route: 062
     Dates: start: 20111012, end: 20111019

REACTIONS (3)
  - NAUSEA [None]
  - OVERDOSE [None]
  - MIGRAINE [None]
